FAERS Safety Report 5546754-2 (Version None)
Quarter: 2007Q4

REPORT INFORMATION
  Report Type: 
  Country: None (occurrence: None)
  Receive Date: 20071207
  Receipt Date: 20071207
  Transmission Date: 20080405
  Serious: Yes (Hospitalization)
  Sender: FDA-Public Use
  Company Number: None

PATIENT
  Age: 72 Year
  Sex: Male
  Weight: 91 kg

DRUGS (13)
  1. GLEEVEC [Suspect]
     Indication: GLIOBLASTOMA
     Dosage: 400 MG BID PO
     Route: 048
     Dates: start: 20071022
  2. HYDROXYUREA [Suspect]
     Dosage: 500 MG, BID PO
     Route: 048
  3. RAD001 [Suspect]
     Indication: GLIOBLASTOMA MULTIFORME
     Dosage: 2.5MG QOD PO
     Route: 048
     Dates: start: 20071022
  4. PREVACID [Concomitant]
  5. PAXIL [Concomitant]
  6. ZANTAC [Concomitant]
  7. DECADRON [Concomitant]
  8. PHENOBARBITAL TAB [Concomitant]
  9. LYRICA [Concomitant]
  10. LOVENOX [Concomitant]
  11. COLACE [Concomitant]
  12. LACTULOSE [Concomitant]
  13. MIRALAX [Concomitant]

REACTIONS (1)
  - LOBAR PNEUMONIA [None]
